FAERS Safety Report 11852849 (Version 2)
Quarter: 2016Q1

REPORT INFORMATION
  Report Type: Spontaneous
  Country: US (occurrence: US)
  Receive Date: 20151218
  Receipt Date: 20160201
  Transmission Date: 20160526
  Serious: No
  Sender: FDA-Public Use
  Company Number: US-LEO PHARMA-239106

PATIENT
  Age: 53 Year
  Sex: Female

DRUGS (2)
  1. PICATO [Suspect]
     Active Substance: INGENOL MEBUTATE
     Indication: ACTINIC KERATOSIS
     Route: 061
     Dates: start: 20151205, end: 20151207
  2. PICATO [Suspect]
     Active Substance: INGENOL MEBUTATE

REACTIONS (10)
  - Dry skin [Recovered/Resolved]
  - Application site scab [Recovered/Resolved]
  - Application site exfoliation [Recovered/Resolved]
  - Application site inflammation [Recovered/Resolved]
  - Application site pain [Recovered/Resolved]
  - Application site pain [Recovered/Resolved]
  - Application site swelling [Recovered/Resolved]
  - Inappropriate schedule of drug administration [Unknown]
  - Drug administered at inappropriate site [Unknown]
  - Application site erythema [Recovered/Resolved]

NARRATIVE: CASE EVENT DATE: 20151206
